FAERS Safety Report 22622835 (Version 1)
Quarter: 2023Q2

REPORT INFORMATION
  Report Type: Spontaneous
  Country: DE (occurrence: DE)
  Receive Date: 20230621
  Receipt Date: 20230621
  Transmission Date: 20230722
  Serious: Yes (Hospitalization)
  Sender: FDA-Public Use
  Company Number: DE-ABBVIE-5298311

PATIENT
  Age: 29 Year
  Sex: Female

DRUGS (4)
  1. UPADACITINIB [Suspect]
     Active Substance: UPADACITINIB
     Indication: Juvenile idiopathic arthritis
     Route: 048
     Dates: start: 202002, end: 202101
  2. RITONAVIR [Concomitant]
     Active Substance: RITONAVIR
     Indication: COVID-19
  3. PAXLOVID [Concomitant]
     Active Substance: NIRMATRELVIR\RITONAVIR
     Indication: COVID-19
  4. FERINJECT [Concomitant]
     Active Substance: FERRIC CARBOXYMALTOSE
     Indication: Iron deficiency anaemia
     Route: 042
     Dates: start: 202107, end: 202107

REACTIONS (9)
  - Synoviorthesis [Unknown]
  - Synovectomy [Unknown]
  - Sinusitis [Unknown]
  - Baker^s cyst excision [Unknown]
  - Gestational diabetes [Unknown]
  - COVID-19 [Unknown]
  - Pneumonia [Unknown]
  - Arthroscopy [Unknown]
  - Iron deficiency anaemia [Unknown]

NARRATIVE: CASE EVENT DATE: 20200801
